FAERS Safety Report 15456715 (Version 1)
Quarter: 2018Q4

REPORT INFORMATION
  Report Type: Spontaneous
  Country: IT (occurrence: IT)
  Receive Date: 20181002
  Receipt Date: 20181002
  Transmission Date: 20190204
  Serious: Yes (Other)
  Sender: FDA-Public Use
  Company Number: IT-ELI_LILLY_AND_COMPANY-IT201809009706

PATIENT
  Age: 14 Year
  Sex: Male
  Weight: 66 kg

DRUGS (3)
  1. RISPERDAL [Suspect]
     Active Substance: RISPERIDONE
     Indication: AUTISM SPECTRUM DISORDER
     Dosage: 2 ML, DAILY
     Route: 048
     Dates: start: 20150513, end: 20180128
  2. STRATTERA [Suspect]
     Active Substance: ATOMOXETINE HYDROCHLORIDE
     Indication: AUTISM SPECTRUM DISORDER
     Dosage: 60 MG, DAILY
     Route: 048
     Dates: start: 20150513
  3. GABAPENTIN ABC [Concomitant]
     Dosage: 900 MG, UNKNOWN
     Route: 048
     Dates: start: 20171011

REACTIONS (3)
  - Electrocardiogram QT prolonged [Unknown]
  - Off label use [Unknown]
  - Tachycardia [Unknown]

NARRATIVE: CASE EVENT DATE: 20150513
